FAERS Safety Report 6793574-7 (Version None)
Quarter: 2010Q2

REPORT INFORMATION
  Report Type: 
  Country: None (occurrence: None)
  Receive Date: 20100624
  Receipt Date: 20090209
  Transmission Date: 20101027
  Serious: Yes (Hospitalization, Other)
  Sender: FDA-Public Use
  Company Number: US-PFIZER INC-2008098587

PATIENT
  Age: 57 Year
  Sex: Female

DRUGS (3)
  1. ARGATROBAN [Suspect]
  2. COUMADIN [Concomitant]
     Dosage: UNK
  3. CORTICOSTEROIDS [Concomitant]
     Dosage: UNK

REACTIONS (2)
  - PRURITUS [None]
  - RASH [None]
